FAERS Safety Report 8245086-1 (Version None)
Quarter: 2012Q1

REPORT INFORMATION
  Report Type: 
  Country: None (occurrence: None)
  Receive Date: 20120329
  Receipt Date: 20120322
  Transmission Date: 20120608
  Serious: Yes (Other)
  Sender: FDA-Public Use
  Company Number: US-GLAXOSMITHKLINE-A0970827A

PATIENT
  Age: 4 Month
  Sex: Male

DRUGS (2)
  1. VITAMIN D [Concomitant]
  2. RANITIDINE HCL [Suspect]
     Indication: GASTROOESOPHAGEAL REFLUX DISEASE
     Dosage: 2.5ML THREE TIMES PER DAY
     Route: 048
     Dates: start: 20120306, end: 20120321

REACTIONS (8)
  - HEPATIC ENZYME INCREASED [None]
  - OVERDOSE [None]
  - ALANINE AMINOTRANSFERASE INCREASED [None]
  - IRRITABILITY [None]
  - HYPERSOMNIA [None]
  - ASPARTATE AMINOTRANSFERASE INCREASED [None]
  - BLOOD ALKALINE PHOSPHATASE INCREASED [None]
  - VOMITING [None]
